FAERS Safety Report 19996656 (Version 1)
Quarter: 2021Q4

REPORT INFORMATION
  Report Type: Other
  Country: US (occurrence: US)
  Receive Date: 20211026
  Receipt Date: 20211026
  Transmission Date: 20220303
  Serious: Yes (Hospitalization, Disabling, Other)
  Sender: FDA-Public Use
  Company Number: US-ROCHE-2934376

PATIENT
  Sex: Female
  Weight: 79.9 kg

DRUGS (9)
  1. OCREVUS [Suspect]
     Active Substance: OCRELIZUMAB
     Indication: Multiple sclerosis
     Route: 042
     Dates: end: 202009
  2. BETAFERON [Concomitant]
     Active Substance: INTERFERON BETA-1B
     Indication: Multiple sclerosis
  3. AVONEX [Concomitant]
     Active Substance: INTERFERON BETA-1A
     Indication: Multiple sclerosis
  4. GABAPENTIN [Concomitant]
     Active Substance: GABAPENTIN
  5. ELIQUIS [Concomitant]
     Active Substance: APIXABAN
  6. BACLOFEN [Concomitant]
     Active Substance: BACLOFEN
  7. ZOCOR [Concomitant]
     Active Substance: SIMVASTATIN
  8. DALFAMPRIDINE [Concomitant]
     Active Substance: DALFAMPRIDINE
  9. FLUOXETINE [Concomitant]
     Active Substance: FLUOXETINE HYDROCHLORIDE

REACTIONS (6)
  - Urinary tract infection [Recovered/Resolved]
  - Skin infection [Recovered/Resolved]
  - Sepsis [Recovered/Resolved]
  - Asthenia [Not Recovered/Not Resolved]
  - Memory impairment [Not Recovered/Not Resolved]
  - Thrombosis [Unknown]
